FAERS Safety Report 4594974-6 (Version None)
Quarter: 2005Q1

REPORT INFORMATION
  Report Type: 
  Country: None (occurrence: None)
  Receive Date: 20050224
  Receipt Date: 20030609
  Transmission Date: 20050727
  Serious: Yes (Other)
  Sender: FDA-Public Use
  Company Number: GXKR2003GB00637

PATIENT
  Age: 2 Year
  Sex: Female
  Weight: 13 kg

DRUGS (2)
  1. TRIMETHOPRIM [Suspect]
     Indication: PROPHYLAXIS
     Dosage: 50 MG/5 ML, ORAL
     Route: 048
     Dates: start: 20030512, end: 20030527
  2. CALPOL (PARACETAMOL) [Concomitant]

REACTIONS (2)
  - HYPERTENSION [None]
  - MOUTH ULCERATION [None]
